FAERS Safety Report 18534552 (Version 2)
Quarter: 2021Q4

REPORT INFORMATION
  Report Type: Spontaneous
  Country: US (occurrence: US)
  Receive Date: 20201123
  Receipt Date: 20211015
  Transmission Date: 20220303
  Serious: No
  Sender: FDA-Public Use
  Company Number: US-PFIZER INC-2018215307

PATIENT
  Age: 61 Year
  Sex: Male

DRUGS (11)
  1. LYRICA [Suspect]
     Active Substance: PREGABALIN
     Indication: Lumbar radiculopathy
     Dosage: 100 MG, 3X/DAY
     Route: 048
  2. LYRICA [Suspect]
     Active Substance: PREGABALIN
     Indication: Pain
  3. LYRICA [Suspect]
     Active Substance: PREGABALIN
     Indication: Back pain
  4. LYRICA [Suspect]
     Active Substance: PREGABALIN
     Indication: Neck pain
  5. LYRICA [Suspect]
     Active Substance: PREGABALIN
     Indication: Myofascial pain syndrome
  6. LYRICA [Suspect]
     Active Substance: PREGABALIN
     Indication: Polyneuropathy idiopathic progressive
  7. LYRICA [Suspect]
     Active Substance: PREGABALIN
     Indication: Sleep disorder
  8. LYRICA [Suspect]
     Active Substance: PREGABALIN
     Indication: Depression
  9. LYRICA [Suspect]
     Active Substance: PREGABALIN
     Indication: Anxiety
  10. LYRICA [Suspect]
     Active Substance: PREGABALIN
     Indication: Neuropathy peripheral
  11. LYRICA [Suspect]
     Active Substance: PREGABALIN
     Indication: Spinal pain

REACTIONS (1)
  - Drug hypersensitivity [Unknown]
